FAERS Safety Report 5289609-3 (Version None)
Quarter: 2007Q1

REPORT INFORMATION
  Report Type: 
  Country: None (occurrence: None)
  Receive Date: 20070116
  Receipt Date: 20060925
  Transmission Date: 20070707
  Serious: Yes (Other)
  Sender: FDA-Public Use
  Company Number: HQWYE213817JUL04

PATIENT
  Age: 64 Year
  Sex: Female

DRUGS (6)
  1. PREMPRO (CONJUGATED ESTROGENS/MEDROXYPROGESTERONE PROVERA (MEDROXYPROG [Suspect]
     Indication: HORMONE REPLACEMENT THERAPY
     Dosage: SEE IMAGE
     Route: 048
     Dates: start: 19940101, end: 19970101
  2. PREMPRO (CONJUGATED ESTROGENS/MEDROXYPROGESTERONE PROVERA (MEDROXYPROG [Suspect]
     Indication: HORMONE REPLACEMENT THERAPY
     Dosage: SEE IMAGE
     Route: 048
     Dates: start: 19940101
  3. PREMARIN [Suspect]
     Dosage: 0.9MG DAYS 1-25, ORAL
     Route: 048
     Dates: start: 19970101, end: 19970101
  4. ASPIRIN [Concomitant]
  5. INDERAL [Concomitant]
  6. PROVERA [Suspect]
     Dosage: 10MG DAY 15-25
     Dates: start: 19940101

REACTIONS (1)
  - BREAST CANCER [None]
